APPROVED DRUG PRODUCT: METAXALONE
Active Ingredient: METAXALONE
Strength: 800MG
Dosage Form/Route: TABLET;ORAL
Application: A204770 | Product #001 | TE Code: AB
Applicant: LANNETT CO INC
Approved: Nov 22, 2016 | RLD: No | RS: No | Type: RX